FAERS Safety Report 6112512-3 (Version None)
Quarter: 2009Q1

REPORT INFORMATION
  Report Type: 
  Country: None (occurrence: None)
  Receive Date: 20090312
  Receipt Date: 20090305
  Transmission Date: 20090719
  Serious: Yes (Hospitalization)
  Sender: FDA-Public Use
  Company Number: US-BIOGENIDEC-2009BI005988

PATIENT
  Age: 65 Year
  Sex: Female

DRUGS (2)
  1. TYSABRI [Suspect]
     Indication: MULTIPLE SCLEROSIS
     Route: 042
     Dates: start: 20070904, end: 20080516
  2. TYSABRI [Suspect]
     Route: 042
     Dates: start: 20080821

REACTIONS (4)
  - ANKLE FRACTURE [None]
  - FALL [None]
  - FOOT FRACTURE [None]
  - MULTIPLE SCLEROSIS [None]
